FAERS Safety Report 16232199 (Version 2)
Quarter: 2020Q1

REPORT INFORMATION
  Report Type: Spontaneous
  Country: CA (occurrence: CA)
  Receive Date: 20190424
  Receipt Date: 20200226
  Transmission Date: 20200409
  Serious: Yes (Other)
  Sender: FDA-Public Use
  Company Number: CA-SA-2019SA110436

PATIENT
  Age: 79 Year
  Sex: Female

DRUGS (5)
  1. ARAVA [Suspect]
     Active Substance: LEFLUNOMIDE
  2. METHOTREXATE. [Interacting]
     Active Substance: METHOTREXATE
     Indication: RHEUMATOID ARTHRITIS
  3. HUMIRA [Suspect]
     Active Substance: ADALIMUMAB
     Indication: RHEUMATOID ARTHRITIS
     Route: 058
  4. PLAQUENIL [Suspect]
     Active Substance: HYDROXYCHLOROQUINE SULFATE
     Indication: RHEUMATOID ARTHRITIS
  5. SIMPONI [Suspect]
     Active Substance: GOLIMUMAB
     Indication: RHEUMATOID ARTHRITIS

REACTIONS (18)
  - Vomiting [Unknown]
  - Joint range of motion decreased [Unknown]
  - Malaise [Unknown]
  - Arthropathy [Unknown]
  - Grip strength decreased [Unknown]
  - Mobility decreased [Unknown]
  - Arthralgia [Not Recovered/Not Resolved]
  - Cervical vertebral fracture [Unknown]
  - Influenza [Unknown]
  - Rheumatoid arthritis [Unknown]
  - Nausea [Unknown]
  - Loss of consciousness [Recovered/Resolved]
  - Drug intolerance [Unknown]
  - Upper limb fracture [Unknown]
  - Drug ineffective [Unknown]
  - Hypophagia [Unknown]
  - Drug interaction [Unknown]
  - Nausea [Unknown]

NARRATIVE: CASE EVENT DATE: 2017
